FAERS Safety Report 12460169 (Version 4)
Quarter: 2017Q2

REPORT INFORMATION
  Report Type: Spontaneous
  Country: US (occurrence: US)
  Receive Date: 20160613
  Receipt Date: 20170517
  Transmission Date: 20170830
  Serious: No
  Sender: FDA-Public Use
  Company Number: US-PFIZER INC-2016294312

PATIENT
  Age: 46 Year
  Sex: Female

DRUGS (4)
  1. METHOTREXATE. [Concomitant]
     Active Substance: METHOTREXATE
     Dosage: UNK
  2. CYMBALTA [Concomitant]
     Active Substance: DULOXETINE HYDROCHLORIDE
     Dosage: UNK
  3. PREDNISONE. [Concomitant]
     Active Substance: PREDNISONE
     Dosage: UNK
  4. XELJANZ [Suspect]
     Active Substance: TOFACITINIB CITRATE
     Indication: RHEUMATOID ARTHRITIS
     Dosage: 5 MG, 2X/DAY 1 TABLET (FOR 1 1/2 MONTHS)
     Route: 048

REACTIONS (6)
  - Drug dose omission [Unknown]
  - Infection [Unknown]
  - Depressive symptom [Unknown]
  - Myalgia [Unknown]
  - Incorrect product storage [Unknown]
  - Condition aggravated [Unknown]

NARRATIVE: CASE EVENT DATE: 20160522
